FAERS Safety Report 10191613 (Version 1)
Quarter: 2014Q2

REPORT INFORMATION
  Report Type: Spontaneous
  Country: US (occurrence: None)
  Receive Date: 20140522
  Receipt Date: 20140522
  Transmission Date: 20141212
  Serious: No
  Sender: FDA-Public Use
  Company Number: None

PATIENT
  Age: 48 Year
  Sex: Female
  Weight: 85.8 kg

DRUGS (1)
  1. OXALIPLATIN 164 MG [Suspect]
     Dates: end: 20140423

REACTIONS (5)
  - Paraesthesia [None]
  - Flushing [None]
  - Feeling hot [None]
  - Throat tightness [None]
  - Infusion related reaction [None]
